FAERS Safety Report 10241417 (Version 1)
Quarter: 2014Q2

REPORT INFORMATION
  Report Type: Spontaneous
  Country: US (occurrence: US)
  Receive Date: 20140617
  Receipt Date: 20140617
  Transmission Date: 20141212
  Serious: No
  Sender: FDA-Public Use
  Company Number: US-009507513-1405USA014690

PATIENT
  Age: 35 Year
  Sex: Female

DRUGS (4)
  1. ASMANEX TWISTHALER [Suspect]
     Indication: ASTHMA
     Dosage: 220 UNK, 2 INHALATIONS TWICE DAILY
     Route: 055
     Dates: start: 20140512
  2. PROVENTIL [Concomitant]
     Dosage: UNK
  3. SINGULAIR [Concomitant]
     Dosage: UNK
     Route: 048
  4. XOLAIR [Concomitant]
     Dosage: UNK

REACTIONS (2)
  - Product container issue [Unknown]
  - Overdose [Unknown]
